FAERS Safety Report 7657091-4 (Version None)
Quarter: 2011Q3

REPORT INFORMATION
  Report Type: 
  Country: None (occurrence: None)
  Receive Date: 20110804
  Receipt Date: 20100929
  Transmission Date: 20111222
  Serious: No
  Sender: FDA-Public Use
  Company Number: US-GLAXOSMITHKLINE-A0884035A

PATIENT
  Age: 57 Year
  Sex: Female

DRUGS (5)
  1. CLARINEX [Concomitant]
  2. FLONASE [Concomitant]
  3. PRILOSEC [Concomitant]
  4. VITAMIN TAB [Concomitant]
  5. ADVAIR DISKUS 100/50 [Suspect]
     Indication: ASTHMA
     Dosage: 1PUFF TWICE PER DAY
     Route: 055

REACTIONS (6)
  - NERVOUSNESS [None]
  - PRODUCT QUALITY ISSUE [None]
  - PANIC ATTACK [None]
  - ABDOMINAL DISCOMFORT [None]
  - MALAISE [None]
  - FEELING COLD [None]
